FAERS Safety Report 6291372-4 (Version None)
Quarter: 2009Q3

REPORT INFORMATION
  Report Type: 
  Country: None (occurrence: None)
  Receive Date: 20090728
  Receipt Date: 20090728
  Transmission Date: 20100115
  Serious: No
  Sender: FDA-Public Use
  Company Number: None

PATIENT
  Age: 48 Year
  Sex: Female

DRUGS (3)
  1. TAMOXIFEN CITRATE [Suspect]
     Indication: BREAST CANCER
     Dosage: 20MG 1 QHS PO
     Route: 048
     Dates: start: 20070401, end: 20080201
  2. TAMOXIFEN CITRATE [Suspect]
     Indication: BREAST CANCER
     Dosage: 20MG 1 QHS PO
     Route: 048
     Dates: start: 20080301, end: 20080601
  3. TAMOXIFEN CITRATE [Suspect]
     Indication: BREAST CANCER
     Dosage: 20MG 1 QHS PO
     Route: 048
     Dates: start: 20080201, end: 20080701

REACTIONS (4)
  - FEELING ABNORMAL [None]
  - HOT FLUSH [None]
  - LABORATORY TEST ABNORMAL [None]
  - PRODUCT SUBSTITUTION ISSUE [None]
